FAERS Safety Report 9148726 (Version 2)
Quarter: 2013Q1

REPORT INFORMATION
  Report Type: Spontaneous
  Country: US (occurrence: None)
  Receive Date: 20130211
  Receipt Date: 20130221
  Transmission Date: 20140127
  Serious: Yes (Death)
  Sender: FDA-Public Use
  Company Number: 2013SUN00055

PATIENT
  Age: 49 Year
  Sex: Male
  Weight: 89.4 kg

DRUGS (2)
  1. METFORMIN HCL [Suspect]
     Indication: TYPE 2 DIABETES MELLITUS
     Route: 048
     Dates: start: 200707, end: 20100414
  2. ALOGLIPTIN [Suspect]
     Indication: TYPE 2 DIABETES MELLITUS
     Route: 048
     Dates: start: 20100716, end: 2010

REACTIONS (2)
  - Myocardial infarction [None]
  - Emphysema [None]
